FAERS Safety Report 8805712 (Version 1)
Quarter: 2012Q4

REPORT INFORMATION
  Report Type: Spontaneous
  Country: SK (occurrence: None)
  Receive Date: 20120917
  Receipt Date: 20120917
  Transmission Date: 20130627
  Serious: Yes (Death, Hospitalization)
  Sender: FDA-Public Use
  Company Number: 2012P1056331

PATIENT
  Sex: Male
  Weight: 8.6 kg

DRUGS (2)
  1. AMMONAPS [Suspect]
     Indication: DISORDERS OF UREA CYCLE METABOLISM
     Dates: end: 201207
  2. AMMONUL [Suspect]
     Route: 042
     Dates: start: 201207, end: 201207

REACTIONS (4)
  - Dehydration [None]
  - Convulsion [None]
  - Vomiting [None]
  - Hyperammonaemia [None]
